FAERS Safety Report 10011529 (Version 1)
Quarter: 2014Q1

REPORT INFORMATION
  Report Type: Spontaneous
  Country: US (occurrence: None)
  Receive Date: 20140313
  Receipt Date: 20140313
  Transmission Date: 20141002
  Serious: Yes (Other)
  Sender: FDA-Public Use
  Company Number: None

PATIENT
  Sex: Male
  Weight: 86.18 kg

DRUGS (1)
  1. RABEPRAZOLE [Suspect]
     Dosage: 90
     Route: 048

REACTIONS (1)
  - Gastrooesophageal reflux disease [None]
